FAERS Safety Report 4281159-6 (Version None)
Quarter: 2004Q1

REPORT INFORMATION
  Report Type: 
  Country: None (occurrence: None)
  Receive Date: 20040108
  Receipt Date: 20031006
  Transmission Date: 20041129
  Serious: Yes (Other)
  Sender: FDA-Public Use
  Company Number: HQWYE052107OCT03

PATIENT
  Sex: Female

DRUGS (1)
  1. PREMPHASE (CONJUGATED ESTORGENS/MEDROXYPROGESTERONE ACETATE, TABLET, 5 [Suspect]
     Dosage: 0.625MG/5MG DAILY, ORAL
     Route: 048
     Dates: start: 20000723, end: 20000810

REACTIONS (1)
  - CEREBROVASCULAR ACCIDENT [None]
